FAERS Safety Report 4918879-3 (Version None)
Quarter: 2006Q1

REPORT INFORMATION
  Report Type: 
  Country: None (occurrence: None)
  Receive Date: 20060222
  Receipt Date: 20060213
  Transmission Date: 20060701
  Serious: Yes (Hospitalization)
  Sender: FDA-Public Use
  Company Number: AU-ROCHE-436137

PATIENT
  Age: 55 Year
  Sex: Male

DRUGS (5)
  1. MYCOPHENOLATE MOFETIL [Suspect]
     Dosage: DAILY.
     Route: 048
     Dates: start: 20041016
  2. NEORAL [Suspect]
     Dosage: DAILY.
     Route: 048
     Dates: start: 20041025
  3. NYSTATIN [Concomitant]
     Dates: start: 20041016
  4. RESPRIM [Concomitant]
     Dates: start: 20041016
  5. VALGANCICLOVIR [Concomitant]
     Dates: start: 20041016

REACTIONS (5)
  - ABDOMINAL DISTENSION [None]
  - BLOOD CREATININE INCREASED [None]
  - ILEUS [None]
  - LYMPHOCELE [None]
  - THERAPEUTIC AGENT TOXICITY [None]
